FAERS Safety Report 5799962-X (Version None)
Quarter: 2008Q3

REPORT INFORMATION
  Report Type: 
  Country: None (occurrence: None)
  Receive Date: 20080703
  Receipt Date: 20080630
  Transmission Date: 20090109
  Serious: Yes (Other)
  Sender: FDA-Public Use
  Company Number: GB-TEVA-173681ISR

PATIENT
  Age: 33 Year
  Sex: Female

DRUGS (4)
  1. DIAZEPAM [Suspect]
     Indication: AGITATION
     Dates: start: 20080513, end: 20080516
  2. ARIPIPRAZOLE [Suspect]
     Indication: SCHIZOPHRENIA, PARANOID TYPE
  3. CLOZAPINE [Suspect]
     Indication: SCHIZOPHRENIA, PARANOID TYPE
  4. CLOZAPINE [Suspect]

REACTIONS (5)
  - DRUG INEFFECTIVE [None]
  - HYPOTENSION [None]
  - MALAISE [None]
  - PSYCHOTIC DISORDER [None]
  - SUPRAVENTRICULAR TACHYCARDIA [None]
